FAERS Safety Report 25255996 (Version 1)
Quarter: 2025Q2

REPORT INFORMATION
  Report Type: Spontaneous
  Country: US (occurrence: None)
  Receive Date: 20250429
  Receipt Date: 20250429
  Transmission Date: 20250717
  Serious: Yes (Death)
  Sender: FDA-CTU
  Company Number: None

PATIENT
  Age: 52 Year
  Sex: Female

DRUGS (5)
  1. NIACINAMIDE\TIRZEPATIDE [Suspect]
     Active Substance: NIACINAMIDE\TIRZEPATIDE
     Indication: Weight control
     Route: 058
     Dates: start: 20250325, end: 20250405
  2. SINGULAIR [Concomitant]
     Active Substance: MONTELUKAST SODIUM
  3. PROTONIX [Concomitant]
     Active Substance: PANTOPRAZOLE SODIUM
  4. Metoprolol 50 mg ER [Concomitant]
  5. ZYRTEC [Concomitant]
     Active Substance: CETIRIZINE HYDROCHLORIDE

REACTIONS (1)
  - Cardiac disorder [None]

NARRATIVE: CASE EVENT DATE: 20250407
